FAERS Safety Report 8546330-3 (Version None)
Quarter: 2012Q3

REPORT INFORMATION
  Report Type: 
  Country: None (occurrence: None)
  Receive Date: 20120727
  Receipt Date: 20111220
  Transmission Date: 20120928
  Serious: No
  Sender: FDA-Public Use
  Company Number: US-ASTRAZENECA-2011SE76248

PATIENT
  Age: 61 Year
  Sex: Female
  Weight: 67.1 kg

DRUGS (5)
  1. SEROQUEL XR [Suspect]
     Indication: BIPOLAR DISORDER
     Route: 048
  2. LITHIUM CARBONATE [Concomitant]
  3. SEROQUEL XR [Suspect]
     Route: 048
  4. LISINOPRIL [Concomitant]
  5. LEVOTHYROXINE SODIUM [Concomitant]

REACTIONS (3)
  - DRUG EFFECT INCREASED [None]
  - POOR QUALITY SLEEP [None]
  - DRUG DOSE OMISSION [None]
